FAERS Safety Report 9670873 (Version 2)
Quarter: 2014Q1

REPORT INFORMATION
  Report Type: Spontaneous
  Country: JP (occurrence: JP)
  Receive Date: 20131106
  Receipt Date: 20140210
  Transmission Date: 20141002
  Serious: Yes (Death, Other)
  Sender: FDA-Public Use
  Company Number: PHHY2013JP125618

PATIENT
  Sex: Female

DRUGS (3)
  1. RIVASTIGMIN [Suspect]
     Indication: DEMENTIA ALZHEIMER^S TYPE
     Dosage: 4.5 MG, QD
     Route: 062
  2. PAXIL [Suspect]
     Dosage: UNK UKN, UNK
     Route: 048
  3. SEROQUEL [Concomitant]
     Dosage: UNK UKN, UNK

REACTIONS (2)
  - Dystonia [Fatal]
  - Pneumonia [Fatal]
